FAERS Safety Report 6806817-8 (Version None)
Quarter: 2010Q2

REPORT INFORMATION
  Report Type: 
  Country: None (occurrence: None)
  Receive Date: 20100629
  Receipt Date: 20081007
  Transmission Date: 20101027
  Serious: No
  Sender: FDA-Public Use
  Company Number: US-PFIZER INC-2008035620

PATIENT
  Sex: Male

DRUGS (2)
  1. TIKOSYN [Interacting]
  2. DYAZIDE [Suspect]

REACTIONS (3)
  - ANXIETY [None]
  - DRUG ADMINISTRATION ERROR [None]
  - DRUG INTERACTION [None]
